FAERS Safety Report 7000654-X (Version None)
Quarter: 2010Q3

REPORT INFORMATION
  Report Type: 
  Country: None (occurrence: None)
  Receive Date: 20100920
  Receipt Date: 20100215
  Transmission Date: 20110219
  Serious: No
  Sender: FDA-Public Use
  Company Number: US-ASTRAZENECA-2010SE06625

PATIENT
  Age: 32 Year
  Sex: Female

DRUGS (4)
  1. SEROQUEL [Suspect]
     Route: 048
  2. CLONAZEPAM [Concomitant]
  3. EFFEXOR [Concomitant]
  4. ROZEREM [Concomitant]

REACTIONS (2)
  - DRUG DOSE OMISSION [None]
  - MALAISE [None]
